FAERS Safety Report 6653455-6 (Version None)
Quarter: 2010Q1

REPORT INFORMATION
  Report Type: 
  Country: None (occurrence: None)
  Receive Date: 20100322
  Receipt Date: 20100322
  Transmission Date: 20100710
  Serious: No
  Sender: FDA-Public Use
  Company Number: None

PATIENT
  Age: 60 Year
  Sex: Female

DRUGS (4)
  1. DICLOFENAC SODIUM [Suspect]
     Dates: start: 20040923, end: 20041015
  2. FLUOXETINE [Concomitant]
  3. LEVOTHYROXINE SODIUM [Concomitant]
  4. PENICILLIN [Concomitant]

REACTIONS (14)
  - ABDOMINAL DISCOMFORT [None]
  - ACUTE HEPATIC FAILURE [None]
  - APHTHOUS STOMATITIS [None]
  - ASTHENIA [None]
  - CELL DEATH [None]
  - HEPATITIS [None]
  - INTERNATIONAL NORMALISED RATIO INCREASED [None]
  - LIVER DISORDER [None]
  - OEDEMA PERIPHERAL [None]
  - PERIORBITAL OEDEMA [None]
  - PYREXIA [None]
  - STEVENS-JOHNSON SYNDROME [None]
  - TOXIC EPIDERMAL NECROLYSIS [None]
  - URTICARIA [None]
